FAERS Safety Report 23574128 (Version 3)
Quarter: 2024Q2

REPORT INFORMATION
  Report Type: Report from Study
  Country: US (occurrence: US)
  Receive Date: 20240228
  Receipt Date: 20240403
  Transmission Date: 20240716
  Serious: Yes (Other)
  Sender: FDA-Public Use
  Company Number: US-ABBVIE-5174062

PATIENT
  Sex: Male

DRUGS (2)
  1. RINVOQ [Suspect]
     Active Substance: UPADACITINIB
     Indication: Psoriatic arthropathy
     Route: 048
     Dates: start: 20220401
  2. RINVOQ [Suspect]
     Active Substance: UPADACITINIB
     Indication: Psoriatic arthropathy
     Route: 048

REACTIONS (8)
  - Knee arthroplasty [Unknown]
  - Rotator cuff syndrome [Unknown]
  - Pain in extremity [Unknown]
  - Accident [Unknown]
  - Lower limb fracture [Recovering/Resolving]
  - Neuropathy peripheral [Unknown]
  - Arthropathy [Unknown]
  - Fall [Unknown]
